FAERS Safety Report 24301462 (Version 2)
Quarter: 2025Q1

REPORT INFORMATION
  Report Type: Report from Study
  Country: PK (occurrence: PK)
  Receive Date: 20240910
  Receipt Date: 20250221
  Transmission Date: 20250409
  Serious: Yes (Other)
  Sender: ROCHE
  Company Number: PK-ROCHE-10000069532

PATIENT
  Age: 65 Year
  Sex: Male

DRUGS (6)
  1. TECENTRIQ [Suspect]
     Active Substance: ATEZOLIZUMAB
     Indication: Hepatocellular carcinoma
     Dosage: SOLUTION
     Route: 040
     Dates: start: 20240822, end: 20241120
  2. TECENTRIQ [Suspect]
     Active Substance: ATEZOLIZUMAB
     Route: 040
  3. TECENTRIQ [Suspect]
     Active Substance: ATEZOLIZUMAB
     Route: 040
  4. AVASTIN [Suspect]
     Active Substance: BEVACIZUMAB
     Indication: Hepatocellular carcinoma
     Route: 040
  5. AVASTIN [Suspect]
     Active Substance: BEVACIZUMAB
     Route: 040
  6. AVASTIN [Suspect]
     Active Substance: BEVACIZUMAB
     Dosage: SOLUTION
     Route: 040
     Dates: start: 20240822, end: 20241120

REACTIONS (2)
  - Hepatocellular carcinoma [Unknown]
  - Drug ineffective [Unknown]

NARRATIVE: CASE EVENT DATE: 20240822
